FAERS Safety Report 9476032 (Version 1)
Quarter: 2013Q3

REPORT INFORMATION
  Report Type: Spontaneous
  Country: US (occurrence: US)
  Receive Date: 20130826
  Receipt Date: 20130826
  Transmission Date: 20140515
  Serious: Yes (Life-Threatening, Hospitalization, Other)
  Sender: FDA-Public Use
  Company Number: US-009507513-1308USA009782

PATIENT
  Age: 44 Year
  Sex: Female

DRUGS (2)
  1. PEGINTRON [Suspect]
     Indication: HEPATITIS C
     Dosage: UNK
     Route: 058
     Dates: start: 200508, end: 2006
  2. REBETOL [Suspect]
     Route: 048

REACTIONS (4)
  - Suicide attempt [Recovering/Resolving]
  - Depression [Recovering/Resolving]
  - White blood cell count decreased [Recovering/Resolving]
  - Overdose [Unknown]
